FAERS Safety Report 5052024-1 (Version None)
Quarter: 2006Q3

REPORT INFORMATION
  Report Type: 
  Country: None (occurrence: None)
  Receive Date: 20060711
  Receipt Date: 20060620
  Transmission Date: 20061208
  Serious: Yes (Hospitalization)
  Sender: FDA-Public Use
  Company Number: JP200604001304

PATIENT
  Age: 13 Year
  Sex: Male
  Weight: 56 kg

DRUGS (7)
  1. HUMATROPE [Suspect]
     Dosage: 1.6 MG 6/W SUBCUTANEOUS
     Route: 058
     Dates: start: 20051014, end: 20051210
  2. HUMATROPE [Suspect]
     Dosage: 1.6 MG 6/W SUBCUTANEOUS
     Route: 058
     Dates: start: 20051211, end: 20060407
  3. HUMATROPE [Suspect]
     Dosage: 1.6 MG 6/W SUBCUTANEOUS
     Route: 058
     Dates: start: 20060612
  4. CORTRIL [Concomitant]
  5. LEVOTHYROXINE SODIUM [Concomitant]
  6. DEPAKENE [Concomitant]
  7. DESMOPRESSIN ACETATE [Concomitant]

REACTIONS (2)
  - EPIPHYSIOLYSIS [None]
  - PAIN IN EXTREMITY [None]
